FAERS Safety Report 16793384 (Version 3)
Quarter: 2020Q2

REPORT INFORMATION
  Report Type: Spontaneous
  Country: US (occurrence: US)
  Receive Date: 20190911
  Receipt Date: 20200610
  Transmission Date: 20200713
  Serious: Yes (Other)
  Sender: FDA-Public Use
  Company Number: US-AMGEN-USASP2019143725

PATIENT

DRUGS (5)
  1. TERIPARATIDE [Suspect]
     Active Substance: TERIPARATIDE
     Indication: OSTEOPOROSIS
     Dosage: 20 MICROGRAM (STANDARD DOSE)
     Route: 058
  2. ZOLEDRONIC ACID [Concomitant]
     Active Substance: ZOLEDRONIC ACID
     Dosage: 5 MILLIGRAM
  3. TERIPARATIDE [Suspect]
     Active Substance: TERIPARATIDE
     Dosage: 40 MICROGRAM (HIGH DOSE)
     Route: 058
  4. PROLIA [Suspect]
     Active Substance: DENOSUMAB
     Indication: OSTEOPOROSIS POSTMENOPAUSAL
     Dosage: 60 MILLIGRAM, Q6MO
     Route: 058
  5. CALCIUM CARBONATE. [Concomitant]
     Active Substance: CALCIUM CARBONATE
     Dosage: UNK

REACTIONS (19)
  - Muscle spasms [Unknown]
  - Fibula fracture [Unknown]
  - Non-cardiac chest pain [Unknown]
  - Heart rate abnormal [Unknown]
  - Nausea [Unknown]
  - Fatigue [Unknown]
  - Arthralgia [Unknown]
  - Breast cancer in situ [Unknown]
  - Transitional cell carcinoma [Unknown]
  - Squamous cell carcinoma of the tongue [Unknown]
  - Joint dislocation [Unknown]
  - Rhinorrhoea [Unknown]
  - Paraesthesia [Unknown]
  - Eczema [Unknown]
  - Radius fracture [Unknown]
  - Pancreatitis [Unknown]
  - Musculoskeletal pain [Recovered/Resolved]
  - Bone loss [Unknown]
  - Dizziness [Unknown]
